FAERS Safety Report 5627311-6 (Version None)
Quarter: 2008Q1

REPORT INFORMATION
  Report Type: 
  Country: None (occurrence: None)
  Receive Date: 20080215
  Receipt Date: 20080115
  Transmission Date: 20080703
  Serious: No
  Sender: FDA-Public Use
  Company Number: US-BAYER-200811247NA

PATIENT
  Sex: Male

DRUGS (6)
  1. CIPRO [Suspect]
     Indication: DRUG USE FOR UNKNOWN INDICATION
  2. XANAX [Concomitant]
  3. OXYCONTIN [Concomitant]
  4. PROCARDIA [Concomitant]
  5. UNSPECIFIED OTC COUGH AND COLD MEDICATIONS [Concomitant]
  6. OTHER UNKNOWN MEDICATIONS [Concomitant]

REACTIONS (1)
  - DRUG SCREEN POSITIVE [None]
